FAERS Safety Report 7185780-7 (Version None)
Quarter: 2010Q4

REPORT INFORMATION
  Report Type: 
  Country: None (occurrence: None)
  Receive Date: 20101222
  Receipt Date: 20100609
  Transmission Date: 20110411
  Serious: No
  Sender: FDA-Public Use
  Company Number: US-AMGEN-KDL417356

PATIENT

DRUGS (9)
  1. ENBREL [Suspect]
     Indication: PRODUCT USED FOR UNKNOWN INDICATION
     Dosage: 50 MG, QWK
     Route: 058
  2. HYDROXYCHLOROQUINE SULFATE [Concomitant]
     Dosage: 200 MG, UNK
  3. ACTONEL [Concomitant]
     Dosage: 150 MG, UNK
  4. ASCORBIC ACID [Concomitant]
     Dosage: 1000 MG, UNK
  5. FISH OIL [Concomitant]
     Dosage: UNK UNK, UNK
  6. ERGOCALCIFEROL [Concomitant]
     Dosage: 1000 IU, UNK
  7. MULTI-VITAMINS [Concomitant]
     Dosage: UNK UNK, UNK
  8. CALCIUM CARBONATE/VITAMIN D [Concomitant]
     Dosage: UNK UNK, UNK
  9. FOLIC ACID [Concomitant]
     Dosage: 5 MG, UNK

REACTIONS (1)
  - INJECTION SITE HAEMATOMA [None]
